FAERS Safety Report 4559383-4 (Version None)
Quarter: 2005Q1

REPORT INFORMATION
  Report Type: 
  Country: None (occurrence: None)
  Receive Date: 20050124
  Receipt Date: 20040916
  Transmission Date: 20050727
  Serious: Yes (Other)
  Sender: FDA-Public Use
  Company Number: PHNU2004DE03246

PATIENT
  Sex: Female

DRUGS (2)
  1. STARLIX [Suspect]
     Indication: DIABETES MELLITUS
     Route: 048
  2. BETA BLOCKING AGENTS [Concomitant]

REACTIONS (3)
  - ERYTHEMA [None]
  - LUPUS-LIKE SYNDROME [None]
  - PHOTOSENSITIVITY REACTION [None]
